FAERS Safety Report 17678750 (Version 3)
Quarter: 2020Q2

REPORT INFORMATION
  Report Type: Report from Study
  Country: None (occurrence: NL)
  Receive Date: 20200417
  Receipt Date: 20200611
  Transmission Date: 20200714
  Serious: Yes (Death, Hospitalization, Other)
  Sender: FDA-Public Use
  Company Number: NL-ABBVIE-20K-114-3367809-00

PATIENT
  Age: 68 Year
  Sex: Female

DRUGS (1)
  1. DUODOPA [Suspect]
     Active Substance: CARBIDOPA\LEVODOPA
     Indication: PARKINSON^S DISEASE
     Dosage: MD 3 CD 1.5 ED 1.1
     Route: 050
     Dates: start: 20171211

REACTIONS (4)
  - Respiratory disorder [Fatal]
  - General physical health deterioration [Fatal]
  - COVID-19 pneumonia [Fatal]
  - Pneumonia [Unknown]

NARRATIVE: CASE EVENT DATE: 202004
